FAERS Safety Report 7002102-2 (Version None)
Quarter: 2010Q3

REPORT INFORMATION
  Report Type: 
  Country: None (occurrence: None)
  Receive Date: 20100920
  Receipt Date: 20100517
  Transmission Date: 20110219
  Serious: Yes (Disabling)
  Sender: FDA-Public Use
  Company Number: US-ASTRAZENECA-2007UW08928

PATIENT
  Sex: Male

DRUGS (11)
  1. SEROQUEL [Suspect]
     Dosage: 200 MG HS
     Route: 048
     Dates: start: 20040930
  2. FLEXERIL [Concomitant]
     Dates: start: 20061002
  3. ZOCOR [Concomitant]
     Dates: start: 20061002
  4. LYRICA [Concomitant]
     Dates: start: 20061002
  5. LORTAB [Concomitant]
     Dates: start: 20061002
  6. LISINOPRIL [Concomitant]
     Dates: start: 20061002
  7. ELAVIL [Concomitant]
     Dates: start: 20061002
  8. GEODON [Concomitant]
     Dates: start: 20061002
  9. ROBAXIN [Concomitant]
     Dates: start: 20061002
  10. NEURONTIN [Concomitant]
     Dates: start: 20061028
  11. ABILIFY [Concomitant]
     Dates: start: 20061028

REACTIONS (2)
  - DIABETES MELLITUS [None]
  - TYPE 2 DIABETES MELLITUS [None]
